FAERS Safety Report 4318611-0 (Version None)
Quarter: 2004Q1

REPORT INFORMATION
  Report Type: 
  Country: None (occurrence: None)
  Receive Date: 20040316
  Receipt Date: 20040316
  Transmission Date: 20041129
  Serious: No
  Sender: FDA-Public Use
  Company Number: None

PATIENT

DRUGS (5)
  1. CLOZARIL [Suspect]
     Indication: BIPOLAR I DISORDER
     Dosage: 25MG IN AM AND 50MG AT BEDTIME
     Dates: start: 20040209, end: 20040303
  2. TOPAMAX [Concomitant]
  3. ZOLOFT [Concomitant]
  4. INDERAL LA [Concomitant]
  5. ZYPREXA [Concomitant]

REACTIONS (2)
  - DRUG INTERACTION [None]
  - WHITE BLOOD CELL COUNT DECREASED [None]
